FAERS Safety Report 25790922 (Version 1)
Quarter: 2025Q3

REPORT INFORMATION
  Report Type: Spontaneous
  Country: GB (occurrence: GB)
  Receive Date: 20250911
  Receipt Date: 20250911
  Transmission Date: 20251021
  Serious: Yes (Other)
  Sender: MYLAN
  Company Number: GB-MYLANLABS-2025M1052308

PATIENT
  Sex: Female

DRUGS (4)
  1. CLOZARIL [Suspect]
     Active Substance: CLOZAPINE
     Indication: Schizophrenia
  2. CLOZARIL [Suspect]
     Active Substance: CLOZAPINE
  3. ARIPIPRAZOLE [Concomitant]
     Active Substance: ARIPIPRAZOLE
     Dosage: 400 MILLIGRAM, MONTHLY
  4. ZUCLOPENTHIXOL [Concomitant]
     Active Substance: ZUCLOPENTHIXOL

REACTIONS (4)
  - Thrombocytopenia [Unknown]
  - Sedation [Unknown]
  - Treatment noncompliance [Unknown]
  - Off label use [Unknown]
